FAERS Safety Report 24086395 (Version 1)
Quarter: 2024Q3

REPORT INFORMATION
  Report Type: Spontaneous
  Country: CN (occurrence: CN)
  Receive Date: 20240712
  Receipt Date: 20240712
  Transmission Date: 20241017
  Serious: Yes (Hospitalization, Other)
  Sender: INCYTE
  Company Number: CN-INCYTE CORPORATION-2024IN007287

PATIENT

DRUGS (3)
  1. ZYNYZ [Suspect]
     Active Substance: RETIFANLIMAB-DLWR
     Indication: Metastases to lung
     Dosage: 500 MILLIGRAM (INFUSING FOR 30 MIN ON THE FIRST DAY OF EACH CYCLE, 28 DAYS PER CYCLE, 30 CYCLES)
     Route: 042
     Dates: start: 202009
  2. ZYNYZ [Suspect]
     Active Substance: RETIFANLIMAB-DLWR
     Dosage: 500 MILLIGRAM (INFUSING FOR 30 MIN ON THE FIRST DAY OF EACH CYCLE, 28 DAYS PER CYCLE, 30 CYCLES)
     Route: 042
     Dates: start: 202105
  3. METOPROLOL [Concomitant]
     Active Substance: METOPROLOL
     Indication: Hypertension
     Dosage: 50 MILLIGRAM, BID
     Route: 048

REACTIONS (15)
  - Secondary adrenocortical insufficiency [Unknown]
  - Electrolyte imbalance [Recovered/Resolved]
  - Graves^ disease [Recovered/Resolved]
  - Psoriasis [Recovering/Resolving]
  - Decreased appetite [Recovered/Resolved]
  - Fatigue [Recovered/Resolved]
  - Depression [Recovered/Resolved]
  - Nasopharyngitis [Unknown]
  - Nausea [Not Recovered/Not Resolved]
  - Vomiting [Recovered/Resolved]
  - Weight decreased [Recovering/Resolving]
  - Oedema peripheral [Recovered/Resolved]
  - Malaise [Unknown]
  - Hypoglycaemia [Recovered/Resolved]
  - Off label use [Unknown]

NARRATIVE: CASE EVENT DATE: 20200901
